FAERS Safety Report 23692079 (Version 1)
Quarter: 2024Q2

REPORT INFORMATION
  Report Type: Spontaneous
  Country: GB (occurrence: GB)
  Receive Date: 20240401
  Receipt Date: 20240401
  Transmission Date: 20240716
  Serious: Yes (Other)
  Sender: FDA-Public Use
  Company Number: None

PATIENT
  Age: 89 Year

DRUGS (4)
  1. APIXABAN [Suspect]
     Active Substance: APIXABAN
     Indication: Product used for unknown indication
     Dosage: 2.5 MILLIGRAM, BID
     Route: 065
  2. FERROUS FUMARATE [Concomitant]
     Active Substance: FERROUS FUMARATE
     Dosage: 210 MILLIGRAM, QD
     Route: 065
  3. OMEPRAZOLE [Concomitant]
     Active Substance: OMEPRAZOLE
     Dosage: 20 MILLIGRAM, QD
     Route: 065
  4. NEBIVOLOL [Concomitant]
     Active Substance: NEBIVOLOL
     Dosage: 5 MILLIGRAM, BID (HELD)
     Route: 065

REACTIONS (2)
  - Cerebrovascular accident [Unknown]
  - Treatment failure [Unknown]
